FAERS Safety Report 18356122 (Version 6)
Quarter: 2021Q2

REPORT INFORMATION
  Report Type: Report from Study
  Country: US (occurrence: US)
  Receive Date: 20201007
  Receipt Date: 20210426
  Transmission Date: 20210717
  Serious: Yes (Hospitalization, Other)
  Sender: FDA-Public Use
  Company Number: US-BAYER-2020-214188

PATIENT
  Age: 71 Year
  Sex: Male

DRUGS (14)
  1. ONDANSETRON [Concomitant]
     Active Substance: ONDANSETRON
     Dosage: UNK
  2. TAMSULOSIN [Concomitant]
     Active Substance: TAMSULOSIN
     Dosage: UNK
  3. ACETAMINOPHEN;HYDROCODONE [Concomitant]
     Active Substance: ACETAMINOPHEN\HYDROCODONE
     Dosage: UNK
  4. LIDOCAINE;PRILOCAINE [Concomitant]
  5. OXYBUTYNIN CHLORIDE. [Concomitant]
     Active Substance: OXYBUTYNIN CHLORIDE
     Dosage: UNK
  6. AMLODIPINE BESYLATE. [Concomitant]
     Active Substance: AMLODIPINE BESYLATE
     Dosage: UNK
  7. DICLOXACILLIN [Concomitant]
     Active Substance: DICLOXACILLIN
     Dosage: UNK
  8. OMEPRAZOLE. [Concomitant]
     Active Substance: OMEPRAZOLE
     Dosage: UNK
  9. POTASSIUM CITRATE. [Concomitant]
     Active Substance: POTASSIUM CITRATE
     Dosage: UNK
  10. STIVARGA [Suspect]
     Active Substance: REGORAFENIB
     Indication: COLON CANCER
     Dosage: 160 MG, QD
     Route: 048
     Dates: start: 20200921
  11. STIVARGA [Suspect]
     Active Substance: REGORAFENIB
     Indication: ILLNESS
     Dosage: 160 MG DAILY FOR 21OF 28 DAYS
     Route: 048
  12. STIVARGA [Suspect]
     Active Substance: REGORAFENIB
     Indication: COLORECTAL CANCER METASTATIC
     Dosage: DAILY DOSE 160 MG FOR 21 OUT OF 28 DAY CYCLE
     Route: 048
  13. LONSURF [Concomitant]
     Active Substance: TIPIRACIL HYDROCHLORIDE\TRIFLURIDINE
     Dosage: UNK
  14. LIDOCAINE VISCOUS [Concomitant]
     Active Substance: LIDOCAINE HYDROCHLORIDE

REACTIONS (15)
  - Kidney infection [Not Recovered/Not Resolved]
  - Skin warm [Unknown]
  - Decreased appetite [Unknown]
  - Skin exfoliation [Unknown]
  - Blood pressure increased [Unknown]
  - Nephrolithiasis [Not Recovered/Not Resolved]
  - Headache [Unknown]
  - Dysphonia [Unknown]
  - Weight decreased [Unknown]
  - Product dose omission issue [Unknown]
  - Limb injury [Unknown]
  - Urinary tract disorder [Unknown]
  - Fatigue [Unknown]
  - Abdominal hernia [Unknown]
  - Stomatitis [Unknown]
